FAERS Safety Report 23866717 (Version 1)
Quarter: 2024Q2

REPORT INFORMATION
  Report Type: Spontaneous
  Country: AU (occurrence: AU)
  Receive Date: 20240517
  Receipt Date: 20240517
  Transmission Date: 20240716
  Serious: Yes (Life-Threatening, Hospitalization, Disabling)
  Sender: FDA-Public Use
  Company Number: AU-SANDOZ-SDZ2024AU049332

PATIENT
  Age: 65 Year
  Sex: Female
  Weight: 85 kg

DRUGS (24)
  1. ANASTROZOLE [Suspect]
     Active Substance: ANASTROZOLE
     Indication: Hormone receptor positive HER2 negative breast cancer
     Dosage: UNK
     Route: 065
     Dates: start: 20221007, end: 20221019
  2. ANASTROZOLE [Suspect]
     Active Substance: ANASTROZOLE
     Dosage: UNK
     Route: 065
     Dates: start: 20220923, end: 20221006
  3. ANASTROZOLE [Suspect]
     Active Substance: ANASTROZOLE
     Dosage: UNK
     Route: 065
     Dates: start: 20221020, end: 20221116
  4. ANASTROZOLE [Suspect]
     Active Substance: ANASTROZOLE
     Dosage: UNK
     Route: 065
     Dates: start: 20221117, end: 20221215
  5. ANASTROZOLE [Suspect]
     Active Substance: ANASTROZOLE
     Dosage: UNK
     Route: 065
     Dates: start: 20221216, end: 20230114
  6. ANASTROZOLE [Suspect]
     Active Substance: ANASTROZOLE
     Dosage: UNK
     Route: 065
     Dates: start: 20230115, end: 20230209
  7. ANASTROZOLE [Suspect]
     Active Substance: ANASTROZOLE
     Dosage: UNK
     Route: 065
     Dates: start: 20230210, end: 20230210
  8. CAMIZESTRANT [Suspect]
     Active Substance: CAMIZESTRANT
     Indication: Hormone receptor positive HER2 negative breast cancer
     Dosage: UNK
     Route: 065
     Dates: start: 20220923, end: 20221006
  9. CAMIZESTRANT [Suspect]
     Active Substance: CAMIZESTRANT
     Dosage: UNK
     Route: 065
     Dates: start: 20221007, end: 20221019
  10. CAMIZESTRANT [Suspect]
     Active Substance: CAMIZESTRANT
     Dosage: UNK
     Route: 065
     Dates: start: 20221020, end: 20221116
  11. CAMIZESTRANT [Suspect]
     Active Substance: CAMIZESTRANT
     Dosage: UNK
     Route: 065
     Dates: start: 20221117, end: 20221215
  12. CAMIZESTRANT [Suspect]
     Active Substance: CAMIZESTRANT
     Dosage: UNK
     Route: 065
     Dates: start: 20221216, end: 20230114
  13. CAMIZESTRANT [Suspect]
     Active Substance: CAMIZESTRANT
     Dosage: UNK
     Route: 065
     Dates: start: 20230115, end: 20230209
  14. CAMIZESTRANT [Suspect]
     Active Substance: CAMIZESTRANT
     Dosage: UNK
     Route: 065
     Dates: start: 20230210, end: 20230210
  15. PALBOCICLIB [Suspect]
     Active Substance: PALBOCICLIB
     Indication: Breast cancer metastatic
     Dosage: 75 MG
     Route: 065
     Dates: start: 20220923, end: 20230210
  16. CHOLECALCIFEROL [Concomitant]
     Active Substance: CHOLECALCIFEROL
     Indication: Product used for unknown indication
     Dosage: UNK
     Route: 065
     Dates: start: 201906
  17. DENOSUMAB [Concomitant]
     Active Substance: DENOSUMAB
     Indication: Product used for unknown indication
     Dosage: 120 MG, QW
     Route: 065
     Dates: start: 2019
  18. DULOXETINE HYDROCHLORIDE [Concomitant]
     Active Substance: DULOXETINE HYDROCHLORIDE
     Indication: Product used for unknown indication
     Dosage: 30 MG, QD
     Route: 065
     Dates: start: 2018
  19. ENOXAPARIN SODIUM [Concomitant]
     Active Substance: ENOXAPARIN SODIUM
     Indication: Product used for unknown indication
     Dosage: UNK
     Route: 065
     Dates: start: 20220131
  20. GABAPENTIN [Concomitant]
     Active Substance: GABAPENTIN
     Indication: Product used for unknown indication
     Dosage: 300 MG, QD
     Route: 065
  21. HYDROMORPHONE HYDROCHLORIDE [Concomitant]
     Active Substance: HYDROMORPHONE HYDROCHLORIDE
     Indication: Product used for unknown indication
     Dosage: 2 MG, QD
     Route: 065
     Dates: start: 20220131
  22. LEVOTHYROXINE SODIUM [Concomitant]
     Active Substance: LEVOTHYROXINE SODIUM
     Indication: Product used for unknown indication
     Dosage: UNK
     Route: 065
     Dates: start: 201901
  23. PANTOPRAZOLE SODIUM [Concomitant]
     Active Substance: PANTOPRAZOLE SODIUM
     Indication: Product used for unknown indication
     Dosage: 40 MG, QD
     Route: 065
     Dates: start: 20220801
  24. ACETAMINOPHEN [Concomitant]
     Active Substance: ACETAMINOPHEN
     Indication: Product used for unknown indication
     Dosage: UNK
     Route: 065
     Dates: start: 20221014

REACTIONS (1)
  - Cerebral haemorrhage [Recovered/Resolved]

NARRATIVE: CASE EVENT DATE: 20240310
